FAERS Safety Report 9244597 (Version 1)
Quarter: 2013Q2

REPORT INFORMATION
  Report Type: Report from Study
  Country: AR (occurrence: AR)
  Receive Date: 20130422
  Receipt Date: 20130422
  Transmission Date: 20140414
  Serious: Yes (Hospitalization, Other)
  Sender: FDA-Public Use
  Company Number: PHHY2013AR037861

PATIENT
  Sex: Female

DRUGS (1)
  1. TRILEPTAL [Suspect]
     Indication: MUSCLE SPASMS
     Dosage: 1 DF, DAILY
     Route: 048

REACTIONS (1)
  - Lower limb fracture [Recovering/Resolving]
